FAERS Safety Report 24387681 (Version 3)
Quarter: 2024Q4

REPORT INFORMATION
  Report Type: Spontaneous
  Country: US (occurrence: US)
  Receive Date: 20241002
  Receipt Date: 20241212
  Transmission Date: 20250115
  Serious: No
  Sender: PFIZER
  Company Number: US-PFIZER INC-202400262018

PATIENT
  Age: 5 Year
  Sex: Male

DRUGS (2)
  1. GENOTROPIN [Suspect]
     Active Substance: SOMATROPIN
     Dosage: 0.6 MG
  2. GENOTROPIN [Suspect]
     Active Substance: SOMATROPIN
     Dosage: 0.4 MG, DAILY

REACTIONS (5)
  - Incorrect dose administered by device [Unknown]
  - Poor quality device used [Unknown]
  - Device use error [Unknown]
  - Device malfunction [Unknown]
  - Device information output issue [Unknown]

NARRATIVE: CASE EVENT DATE: 20240901
